FAERS Safety Report 18058546 (Version 1)
Quarter: 2020Q3

REPORT INFORMATION
  Report Type: Spontaneous
  Country: US (occurrence: US)
  Receive Date: 20200722
  Receipt Date: 20200722
  Transmission Date: 20201103
  Serious: Yes (Other)
  Sender: FDA-Public Use
  Company Number: None

PATIENT
  Age: 72 Year
  Sex: Female
  Weight: 78.75 kg

DRUGS (3)
  1. GINGER TEA [Concomitant]
     Active Substance: GINGER
  2. PEPPERMINT TEA [Concomitant]
  3. BULK HAND SANITIZER GEL REFILL LARGE PACK (75% ALCOHOL) [Suspect]
     Active Substance: ALCOHOL
     Indication: PERSONAL HYGIENE
     Route: 061
     Dates: start: 20200514, end: 20200622

REACTIONS (2)
  - Device leakage [None]
  - Headache [None]

NARRATIVE: CASE EVENT DATE: 20200622
